FAERS Safety Report 10382107 (Version 1)
Quarter: 2014Q3

REPORT INFORMATION
  Report Type: Spontaneous
  Country: FR (occurrence: FR)
  Receive Date: 20140813
  Receipt Date: 20140813
  Transmission Date: 20150326
  Serious: Yes (Hospitalization)
  Sender: FDA-Public Use
  Company Number: FR-PFIZER INC-2014221110

PATIENT
  Age: 15 Year
  Sex: Female

DRUGS (1)
  1. TRINORDIOL [Suspect]
     Active Substance: ETHINYL ESTRADIOL\LEVONORGESTREL
     Indication: DYSMENORRHOEA
     Dosage: 1 DF, 1X/DAY
     Route: 048
     Dates: start: 20140511, end: 20140622

REACTIONS (2)
  - Paraesthesia [Recovered/Resolved]
  - Gait disturbance [Recovered/Resolved]

NARRATIVE: CASE EVENT DATE: 20140512
